FAERS Safety Report 18820487 (Version 3)
Quarter: 2021Q1

REPORT INFORMATION
  Report Type: Spontaneous
  Country: AU (occurrence: AU)
  Receive Date: 20210202
  Receipt Date: 20210322
  Transmission Date: 20210419
  Serious: Yes (Hospitalization)
  Sender: FDA-Public Use
  Company Number: AU-MYLANLABS-2021M1005529

PATIENT
  Age: 56 Year
  Sex: Female

DRUGS (3)
  1. CHLORPROMAZINE. [Concomitant]
     Active Substance: CHLORPROMAZINE
     Dosage: TDS, 200 MILLIGRAM
  2. CLOZARIL [Suspect]
     Active Substance: CLOZAPINE
     Indication: SCHIZOPHRENIA
     Dosage: 300 MILLIGRAM, QD, NOCTE
     Route: 048
     Dates: start: 20040820, end: 20210115
  3. LAMOTRIGINE. [Concomitant]
     Active Substance: LAMOTRIGINE
     Indication: SEIZURE
     Dosage: 75 MILLIGRAM, BID

REACTIONS (4)
  - Hospitalisation [Not Recovered/Not Resolved]
  - Treatment noncompliance [Unknown]
  - Malaise [Unknown]
  - Mental disorder [Unknown]

NARRATIVE: CASE EVENT DATE: 20210115
